FAERS Safety Report 13726032 (Version 1)
Quarter: 2017Q3

REPORT INFORMATION
  Report Type: Spontaneous
  Country: US (occurrence: US)
  Receive Date: 20170707
  Receipt Date: 20170707
  Transmission Date: 20171127
  Serious: No
  Sender: FDA-Public Use
  Company Number: None

PATIENT
  Age: 41 Year
  Sex: Male
  Weight: 101.6 kg

DRUGS (1)
  1. INTRON A [Suspect]
     Active Substance: INTERFERON ALFA-2B
     Dosage: DOSAGE - 400 MU
     Dates: end: 20120820

REACTIONS (1)
  - Blood creatine phosphokinase increased [None]

NARRATIVE: CASE EVENT DATE: 20120820
